FAERS Safety Report 8920341 (Version 2)
Quarter: 2013Q2

REPORT INFORMATION
  Report Type: Report from Study
  Country: JP (occurrence: JP)
  Receive Date: 20121121
  Receipt Date: 20130402
  Transmission Date: 20140414
  Serious: Yes (Other)
  Sender: FDA-Public Use
  Company Number: JP-AMGEN-JPNCT2012074855

PATIENT
  Age: 46 Year
  Sex: Male
  Weight: 84 kg

DRUGS (17)
  1. DARBEPOETIN ALFA [Suspect]
     Indication: NEPHROGENIC ANAEMIA
     Dosage: 30 MUG, Q4WK
     Route: 040
     Dates: start: 20110920, end: 20111115
  2. DARBEPOETIN ALFA [Suspect]
     Dosage: 15 MUG, QD
     Route: 040
     Dates: start: 20111213, end: 20111213
  3. DARBEPOETIN ALFA [Suspect]
     Dosage: 60 MUG, QD
     Route: 040
     Dates: start: 20120626, end: 20120626
  4. DARBEPOETIN ALFA [Suspect]
     Dosage: 60 MUG, QD
     Route: 040
     Dates: start: 20120720, end: 20120720
  5. DARBEPOETIN ALFA [Suspect]
     Dosage: 60 MUG, QD
     Route: 040
     Dates: start: 20120810, end: 20120810
  6. DARBEPOETIN ALFA [Suspect]
     Dosage: 60 MUG, QD
     Route: 040
     Dates: start: 20120907
  7. ADALAT [Concomitant]
     Indication: NEPHROGENIC ANAEMIA
     Dosage: UNK
     Route: 048
  8. EPADEL [Concomitant]
     Dosage: UNK
     Route: 048
  9. ATELEC [Concomitant]
     Dosage: UNK
     Route: 048
  10. OLMETEC [Concomitant]
     Dosage: UNK
     Route: 048
  11. ARTIST [Concomitant]
     Dosage: UNK
     Route: 048
  12. CARDENALIN [Concomitant]
     Dosage: UNK
     Route: 048
  13. KALIMATE [Concomitant]
     Dosage: UNK
     Route: 048
  14. RASILEZ [Concomitant]
     Dosage: UNK
     Route: 048
  15. ALFAROL [Concomitant]
     Dosage: UNK
     Route: 048
  16. LASIX [Concomitant]
     Dosage: UNK
     Route: 048
  17. FERROMIA [Concomitant]
     Dosage: UNK
     Route: 048

REACTIONS (2)
  - Gastrointestinal haemorrhage [Recovered/Resolved]
  - Duodenitis [Recovered/Resolved]
